FAERS Safety Report 5220235-8 (Version None)
Quarter: 2007Q1

REPORT INFORMATION
  Report Type: 
  Country: None (occurrence: None)
  Receive Date: 20061208
  Receipt Date: 20060825
  Transmission Date: 20070707
  Serious: Yes (Other)
  Sender: FDA-Public Use
  Company Number: 2006103759

PATIENT
  Age: 69 Year
  Sex: Male
  Weight: 74.8435 kg

DRUGS (15)
  1. VIAGRA [Suspect]
     Indication: ERECTILE DYSFUNCTION
     Dosage: 50 MG (50 MG, 1 IN 1 WK) ORAL
     Route: 048
  2. INSULIN, REGULAR (INSULIN) [Concomitant]
  3. MULTIVITAMIN [Concomitant]
  4. VITAMIN E [Concomitant]
  5. GALENIC /IRON/VITAMINS NOS/FOLIC ACID/ (FOLIC ACID, IRON, VITAMINS NOS [Concomitant]
  6. OMEPRAZOLE [Concomitant]
  7. FUROSEMIDE [Concomitant]
  8. ZOLOFT [Concomitant]
  9. ALTACE [Concomitant]
  10. CARVEDILOL [Concomitant]
  11. DIGOXIN [Concomitant]
  12. CLARITIN [Concomitant]
  13. CLOPIDOGREL [Concomitant]
  14. ASPIRIN [Concomitant]
  15. EZETIMIBE (EZETIMIBE) [Concomitant]

REACTIONS (4)
  - BLOOD PRESSURE INCREASED [None]
  - DIZZINESS [None]
  - HYPOTENSION [None]
  - PHOTOPHOBIA [None]
